FAERS Safety Report 14404893 (Version 3)
Quarter: 2018Q1

REPORT INFORMATION
  Report Type: Report from Study
  Country: None (occurrence: TN)
  Receive Date: 20180118
  Receipt Date: 20180301
  Transmission Date: 20180509
  Serious: Yes (Hospitalization)
  Sender: FDA-Public Use
  Company Number: TN-ABBVIE-18K-160-2224714-00

PATIENT
  Age: 19 Year
  Sex: Male
  Weight: 54 kg

DRUGS (2)
  1. HUMIRA [Suspect]
     Active Substance: ADALIMUMAB
     Indication: RHEUMATOID ARTHRITIS
     Route: 058
     Dates: start: 201705, end: 201707
  2. HUMIRA [Suspect]
     Active Substance: ADALIMUMAB
     Indication: CROHN^S DISEASE
     Route: 058
     Dates: start: 20170106, end: 201704

REACTIONS (15)
  - Syncope [Recovered/Resolved]
  - Calcium deficiency [Recovered/Resolved]
  - Gastrointestinal infection [Recovered/Resolved]
  - Intestinal resection [Recovered/Resolved]
  - Abnormal loss of weight [Recovered/Resolved]
  - Calcium deficiency [Recovered/Resolved]
  - Vomiting [Recovered/Resolved]
  - Hypovitaminosis [Unknown]
  - Intentional product misuse [Unknown]
  - Arthralgia [Recovered/Resolved]
  - Vomiting [Recovered/Resolved]
  - Anaemia [Recovered/Resolved]
  - Renal impairment [Recovered/Resolved]
  - Malnutrition [Unknown]
  - Dehydration [Recovered/Resolved]

NARRATIVE: CASE EVENT DATE: 2017
